FAERS Safety Report 12865357 (Version 1)
Quarter: 2016Q4

REPORT INFORMATION
  Report Type: Spontaneous
  Country: FR (occurrence: FR)
  Receive Date: 20161020
  Receipt Date: 20161020
  Transmission Date: 20170207
  Serious: Yes (Hospitalization, Other)
  Sender: FDA-Public Use
  Company Number: FR-ASTRAZENECA-2016SF09286

PATIENT
  Age: 27749 Day
  Sex: Male

DRUGS (11)
  1. INEXIUM [Suspect]
     Active Substance: ESOMEPRAZOLE
     Indication: GASTRITIS
     Route: 048
  2. CIFLOX [Concomitant]
     Active Substance: CIPROFLOXACIN
  3. KARDEGIC [Concomitant]
     Active Substance: ASPIRIN LYSINE
  4. TAHOR [Concomitant]
     Active Substance: ATORVASTATIN CALCIUM
  5. INEXIUM [Suspect]
     Active Substance: ESOMEPRAZOLE
     Indication: GASTRITIS
     Route: 048
     Dates: start: 20160830, end: 20160906
  6. FLUCONAZOLE. [Concomitant]
     Active Substance: FLUCONAZOLE
     Dates: start: 20160826
  7. FLUCONAZOLE. [Concomitant]
     Active Substance: FLUCONAZOLE
     Dates: end: 20160905
  8. FUNGIZONE [Concomitant]
     Active Substance: AMPHOTERICIN B
  9. MYFORTIC [Concomitant]
     Active Substance: MYCOPHENOLATE SODIUM
  10. VIREAD [Concomitant]
     Active Substance: TENOFOVIR DISOPROXIL FUMARATE
  11. AUGMENTIN [Concomitant]
     Active Substance: AMOXICILLIN\CLAVULANATE POTASSIUM

REACTIONS (3)
  - Pneumonia pseudomonal [Unknown]
  - Agranulocytosis [Recovered/Resolved]
  - Oropharyngeal candidiasis [Unknown]

NARRATIVE: CASE EVENT DATE: 20160828
